FAERS Safety Report 4475955-X (Version None)
Quarter: 2004Q4

REPORT INFORMATION
  Report Type: 
  Country: None (occurrence: None)
  Receive Date: 20041012
  Receipt Date: 20041001
  Transmission Date: 20050328
  Serious: Yes (Other)
  Sender: FDA-Public Use
  Company Number: 2004-09-0869

PATIENT
  Age: 47 Year
  Sex: Female
  Weight: 72.5755 kg

DRUGS (7)
  1. PEG-INTRON [Suspect]
     Indication: HEPATITIS C
     Dosage: 150 MCG QW SUBCUTANEOUS
     Route: 058
     Dates: start: 20031031, end: 20040924
  2. REBETOL [Suspect]
     Indication: HEPATITIS C
     Dosage: 1200 MG QD ORAL
     Route: 048
     Dates: start: 20031031, end: 20040401
  3. NEUPOGEN [Concomitant]
  4. PROCRIT INJECTABLE [Concomitant]
  5. PREVACID [Concomitant]
  6. NAPROXEN [Concomitant]
  7. XANAX [Concomitant]

REACTIONS (7)
  - GASTROOESOPHAGEAL REFLUX DISEASE [None]
  - HYPOTHYROIDISM [None]
  - LARYNGEAL NEOPLASM [None]
  - LARYNGEAL OEDEMA [None]
  - TORTICOLLIS [None]
  - VIRAL INFECTION [None]
  - VOCAL CORD PARALYSIS [None]
